FAERS Safety Report 14180961 (Version 1)
Quarter: 2017Q4

REPORT INFORMATION
  Report Type: Spontaneous
  Country: US (occurrence: US)
  Receive Date: 20171110
  Receipt Date: 20171110
  Transmission Date: 20180321
  Serious: Yes (Life-Threatening, Hospitalization, Disabling, Other)
  Sender: FDA-Public Use
  Company Number: None

PATIENT
  Age: 8 Year
  Sex: Male
  Weight: 31.5 kg

DRUGS (4)
  1. TRIAMCINOLONE ACETONIDE OINTMENT 0.1% [Suspect]
     Active Substance: TRIAMCINOLONE ACETONIDE
     Indication: ECZEMA
     Dosage: QUANTITY:160 FINGERTIP UNITS;?
     Route: 061
     Dates: start: 20121204, end: 20130701
  2. MOMETASONE FUROATE CREAM 0.1% [Suspect]
     Active Substance: MOMETASONE FUROATE
     Indication: ECZEMA
     Dosage: ?          QUANTITY:90 FINGERTIP UNITS;?
     Route: 061
     Dates: start: 20091201, end: 20130701
  3. EPIPEN [Concomitant]
     Active Substance: EPINEPHRINE
  4. BENADRYL [Concomitant]
     Active Substance: DIPHENHYDRAMINE HYDROCHLORIDE

REACTIONS (11)
  - Lethargy [None]
  - Pain [None]
  - Cardiac murmur [None]
  - Fatigue [None]
  - Skin infection [None]
  - Withdrawal syndrome [None]
  - Skin exfoliation [None]
  - Erythema [None]
  - Hunger [None]
  - Flushing [None]
  - Lymphadenopathy [None]

NARRATIVE: CASE EVENT DATE: 20130701
